FAERS Safety Report 4748554-X (Version None)
Quarter: 2005Q3

REPORT INFORMATION
  Report Type: 
  Country: None (occurrence: None)
  Receive Date: 20050818
  Receipt Date: 20050818
  Transmission Date: 20060218
  Serious: Yes (Other)
  Sender: FDA-Public Use
  Company Number: None

PATIENT
  Age: 40 Year
  Sex: Female

DRUGS (5)
  1. NEFAZADONE 200MG TABLET [Suspect]
     Indication: DEPRESSION
     Dosage: 1 TABLET BY MOUTH DAILY
     Dates: start: 20050820
  2. SEROQUEL [Concomitant]
  3. PREVACID [Concomitant]
  4. CRESTOR [Concomitant]
  5. CELEBREX [Concomitant]

REACTIONS (3)
  - DEPRESSION [None]
  - DISEASE RECURRENCE [None]
  - PHARMACEUTICAL PRODUCT COMPLAINT [None]
